FAERS Safety Report 17711419 (Version 5)
Quarter: 2021Q1

REPORT INFORMATION
  Report Type: Spontaneous
  Country: JP (occurrence: JP)
  Receive Date: 20200427
  Receipt Date: 20210319
  Transmission Date: 20210419
  Serious: Yes (Death, Hospitalization, Other)
  Sender: FDA-Public Use
  Company Number: JP-ASTRAZENECA-2020SE55240

PATIENT
  Age: 69 Year
  Sex: Female
  Weight: 47 kg

DRUGS (7)
  1. TERNELIN [Suspect]
     Active Substance: TIZANIDINE
     Indication: LUMBAR SPINAL STENOSIS
     Route: 048
     Dates: start: 20200205, end: 20200322
  2. ALDACTONE A [Suspect]
     Active Substance: SPIRONOLACTONE
     Indication: RENAL DISORDER
     Route: 048
     Dates: start: 20200312, end: 20200322
  3. SUMILU STICK [Concomitant]
     Active Substance: FELBINAC
     Indication: LUMBAR SPINAL STENOSIS
     Route: 003
     Dates: start: 20200205
  4. CELECOX [Suspect]
     Active Substance: CELECOXIB
     Indication: LUMBAR SPINAL STENOSIS
     Route: 048
     Dates: start: 20200215, end: 20200322
  5. METHYCOBAL [Suspect]
     Active Substance: METHYLCOBALAMIN
     Indication: LUMBAR SPINAL STENOSIS
     Route: 048
     Dates: start: 20200205, end: 20200322
  6. LASIX [Suspect]
     Active Substance: FUROSEMIDE
     Indication: OEDEMA PERIPHERAL
     Route: 048
     Dates: start: 20200312, end: 20200322
  7. NEXIUM [Suspect]
     Active Substance: ESOMEPRAZOLE MAGNESIUM
     Indication: PROPHYLAXIS AGAINST GASTROINTESTINAL ULCER
     Route: 048
     Dates: start: 20200305, end: 20200322

REACTIONS (4)
  - Oedema peripheral [Recovering/Resolving]
  - Renal disorder [Recovering/Resolving]
  - Hepatitis fulminant [Fatal]
  - Liver disorder [Fatal]

NARRATIVE: CASE EVENT DATE: 20200312
